FAERS Safety Report 7568380-6 (Version None)
Quarter: 2011Q2

REPORT INFORMATION
  Report Type: 
  Country: None (occurrence: None)
  Receive Date: 20110623
  Receipt Date: 20110614
  Transmission Date: 20111010
  Serious: Yes (Other)
  Sender: FDA-Public Use
  Company Number: B0721842A

PATIENT
  Age: 38 Year
  Sex: Male
  Weight: 61 kg

DRUGS (9)
  1. CEDILANID [Concomitant]
  2. BUMETANIDE [Concomitant]
  3. AMIODARONE HCL [Concomitant]
  4. ARIXTRA [Suspect]
     Dosage: 2.5MG PER DAY
     Route: 058
     Dates: start: 20110425, end: 20110501
  5. DIGOXIN [Concomitant]
  6. WARFARIN SODIUM [Concomitant]
     Dates: start: 20110501
  7. OXCARBAZEPINE [Concomitant]
  8. BETALOC [Concomitant]
  9. UNKNOWN DRUG [Concomitant]

REACTIONS (8)
  - COMA [None]
  - BRAIN HERNIATION [None]
  - HAEMORRHAGE INTRACRANIAL [None]
  - HEPATIC STEATOSIS [None]
  - RESPIRATORY ARREST [None]
  - MYDRIASIS [None]
  - SPEECH DISORDER [None]
  - DILATATION VENTRICULAR [None]
